FAERS Safety Report 9418431 (Version 2)
Quarter: 2014Q1

REPORT INFORMATION
  Report Type: Spontaneous
  Country: US (occurrence: US)
  Receive Date: 20130725
  Receipt Date: 20140211
  Transmission Date: 20141002
  Serious: No
  Sender: FDA-Public Use
  Company Number: US-BIOGENIDEC-2013BI067011

PATIENT
  Sex: Female

DRUGS (1)
  1. TYSABRI [Suspect]
     Indication: MULTIPLE SCLEROSIS
     Route: 042
     Dates: start: 20130628

REACTIONS (7)
  - Mobility decreased [Not Recovered/Not Resolved]
  - General symptom [Unknown]
  - Decreased immune responsiveness [Unknown]
  - Frustration [Unknown]
  - Asthenia [Unknown]
  - Drug ineffective [Unknown]
  - Multiple sclerosis relapse [Unknown]
